FAERS Safety Report 17448948 (Version 1)
Quarter: 2020Q1

REPORT INFORMATION
  Report Type: Spontaneous
  Country: GB (occurrence: GB)
  Receive Date: 20200224
  Receipt Date: 20200224
  Transmission Date: 20200409
  Serious: Yes (Hospitalization, Other)
  Sender: FDA-Public Use
  Company Number: GB-AUROBINDO-AUR-APL-2020-008058

PATIENT
  Age: 60 Year
  Sex: Female

DRUGS (8)
  1. MEROPENEM. [Suspect]
     Active Substance: MEROPENEM
     Indication: CELLULITIS
     Dosage: 1 GRAM, 3 TIMES A DAY
     Route: 065
  2. CLINDAMYCIN. [Concomitant]
     Active Substance: CLINDAMYCIN
     Indication: CELLULITIS
     Dosage: UNK
     Route: 042
  3. LAMIVUDINE. [Concomitant]
     Active Substance: LAMIVUDINE
     Indication: HIV INFECTION
     Dosage: 150 MILLIGRAM, ONCE A DAY
     Route: 065
  4. DARUNAVIR [Concomitant]
     Active Substance: DARUNAVIR
     Indication: HIV INFECTION
     Dosage: 800 MILLIGRAM, ONCE A DAY
     Route: 065
  5. RITONAVIR. [Concomitant]
     Active Substance: RITONAVIR
     Indication: HIV INFECTION
     Dosage: 100 MILLIGRAM, ONCE A DAY
     Route: 065
  6. MEROPENEM. [Suspect]
     Active Substance: MEROPENEM
     Indication: SERRATIA INFECTION
  7. VANCOMYCIN [Concomitant]
     Active Substance: VANCOMYCIN
     Indication: CELLULITIS
     Dosage: UNK
     Route: 042
  8. CLINDAMYCIN. [Concomitant]
     Active Substance: CLINDAMYCIN
     Dosage: 600 MILLIGRAM, FOUR TIMES/DAY
     Route: 065

REACTIONS (4)
  - Drug-induced liver injury [Recovered/Resolved]
  - Coagulopathy [Recovered/Resolved]
  - Hyperbilirubinaemia [Recovered/Resolved]
  - Treatment failure [Unknown]
